FAERS Safety Report 5471286-X (Version None)
Quarter: 2007Q3

REPORT INFORMATION
  Report Type: 
  Country: None (occurrence: None)
  Receive Date: 20070928
  Receipt Date: 20070917
  Transmission Date: 20080115
  Serious: Yes (Other)
  Sender: FDA-Public Use
  Company Number: JP-ROCHE-518315

PATIENT
  Age: 27 Year
  Sex: Female

DRUGS (10)
  1. MYCOPHENOLATE MOFETIL [Suspect]
     Indication: IMMUNOSUPPRESSION
     Dosage: FOR FIRST FIVE WEEKS
     Route: 048
  2. MYCOPHENOLATE MOFETIL [Suspect]
     Dosage: 6 MONTHS POST-TRANSLATION DURING ACUTE REJECTION DOSAGE INCREASED
     Route: 048
  3. MYCOPHENOLATE MOFETIL [Suspect]
     Route: 048
  4. INTRAVENOUS TACROLIMUS [Suspect]
     Indication: IMMUNOSUPPRESSION
     Dosage: FOR THE FIRST WEEK
     Route: 042
  5. TACROLIMUS [Suspect]
     Indication: IMMUNOSUPPRESSION
     Dosage: ADMINISTERED UNTIL PATIENT DISCHARGE
     Route: 048
  6. PREDNISONE [Suspect]
     Indication: IMMUNOSUPPRESSION
     Dosage: ON FIRST DAY POST-TRANSPLANTATION
     Route: 048
  7. PREDNISONE [Suspect]
     Route: 048
  8. PREDNISONE [Suspect]
     Dosage: UNTIL DISCHARGE
     Route: 048
  9. PREDNISONE [Suspect]
     Dosage: REDUCED
     Route: 048
  10. PREDNISONE [Suspect]
     Route: 048

REACTIONS (1)
  - POLYOMAVIRUS-ASSOCIATED NEPHROPATHY [None]
